FAERS Safety Report 6860745-0 (Version None)
Quarter: 2010Q3

REPORT INFORMATION
  Report Type: 
  Country: None (occurrence: None)
  Receive Date: 20100720
  Receipt Date: 20100707
  Transmission Date: 20110219
  Serious: Yes (Hospitalization, Other)
  Sender: FDA-Public Use
  Company Number: PHHY2010US36361

PATIENT
  Sex: Male
  Weight: 86 kg

DRUGS (9)
  1. EXJADE [Suspect]
     Indication: MYELODYSPLASTIC SYNDROME
     Dosage: 3000 MG/DAY
     Route: 048
     Dates: start: 20090804
  2. EXJADE [Suspect]
     Indication: IRON OVERLOAD
     Dosage: 2000 MG
     Dates: start: 20091001
  3. LIPITOR [Concomitant]
     Dosage: 10 MG, DAILY
     Route: 048
  4. ACYCLOVIR [Concomitant]
     Dosage: 400 MG, BID
     Route: 048
  5. PEPCID [Concomitant]
     Dosage: AS NEEDED
  6. AMIODARONE HCL [Concomitant]
     Dosage: 200 MG, DAILY
     Route: 048
  7. NITROGLYCERIN [Concomitant]
     Dosage: 0.4 MG, AS NEEDED
     Route: 060
  8. ASPIRIN [Concomitant]
     Dosage: 81 MG, UNK
     Route: 048
  9. RED BLOOD CELLS [Concomitant]
     Dosage: 2 UNITS EVERY 2 WEEKS

REACTIONS (6)
  - ANGINA UNSTABLE [None]
  - ANGIOGRAM [None]
  - BLOOD GLUCOSE INCREASED [None]
  - CARDIAC OPERATION [None]
  - CORONARY ARTERY DISEASE [None]
  - VASCULAR GRAFT [None]
